FAERS Safety Report 18415318 (Version 3)
Quarter: 2021Q1

REPORT INFORMATION
  Report Type: Spontaneous
  Country: GB (occurrence: GB)
  Receive Date: 20201022
  Receipt Date: 20210108
  Transmission Date: 20210419
  Serious: Yes (Hospitalization)
  Sender: FDA-Public Use
  Company Number: GB-AMGEN-GBRSP2020169471

PATIENT
  Age: 15 Year
  Sex: Male

DRUGS (3)
  1. AMGEVITA [Suspect]
     Active Substance: ADALIMUMAB
     Indication: MULTIPLE SCLEROSIS
     Dosage: 40 MILLIGRAM, QWK
     Route: 058
     Dates: start: 2020
  2. AMGEVITA [Suspect]
     Active Substance: ADALIMUMAB
     Dosage: 40 MILLIGRAM, Q2WK
     Route: 058
     Dates: start: 2020
  3. AMGEVITA [Suspect]
     Active Substance: ADALIMUMAB
     Indication: UVEITIS
     Dosage: 40 MILLIGRAM, Q3WK
     Route: 058
     Dates: start: 2019

REACTIONS (2)
  - Cataract operation [Unknown]
  - Off label use [Unknown]

NARRATIVE: CASE EVENT DATE: 2020
